FAERS Safety Report 10448970 (Version 2)
Quarter: 2014Q3

REPORT INFORMATION
  Report Type: Spontaneous
  Country: US (occurrence: US)
  Receive Date: 20140912
  Receipt Date: 20140912
  Transmission Date: 20150326
  Serious: Yes (Other)
  Sender: FDA-Public Use
  Company Number: US-BRISTOL-MYERS SQUIBB COMPANY-21330352

PATIENT
  Age: 71 Year
  Sex: Female
  Weight: 80.72 kg

DRUGS (1)
  1. BYETTA [Suspect]
     Active Substance: EXENATIDE
     Indication: TYPE 2 DIABETES MELLITUS
     Dosage: ONGOING
     Route: 058
     Dates: start: 2006

REACTIONS (5)
  - Blood glucose increased [Unknown]
  - Product quality issue [Unknown]
  - Shoulder operation [Unknown]
  - Knee arthroplasty [Unknown]
  - Drug dose omission [Unknown]

NARRATIVE: CASE EVENT DATE: 2007
